FAERS Safety Report 15606399 (Version 2)
Quarter: 2018Q4

REPORT INFORMATION
  Report Type: Report from Study
  Country: JP (occurrence: JP)
  Receive Date: 20181112
  Receipt Date: 20181123
  Transmission Date: 20190205
  Serious: No
  Sender: FDA-Public Use
  Company Number: JP-ASTRAZENECA-2018SF47461

PATIENT
  Age: 30510 Day
  Sex: Male

DRUGS (7)
  1. RESPLEN [Concomitant]
     Active Substance: EPRAZINONE
     Route: 048
     Dates: start: 20170218, end: 20170530
  2. TRADITIONAL CHINESE MEDICINE NOS [Concomitant]
     Route: 048
     Dates: start: 20170218, end: 20170530
  3. EKLIRA GENUAIR [Suspect]
     Active Substance: ACLIDINIUM BROMIDE
     Indication: CHRONIC OBSTRUCTIVE PULMONARY DISEASE
     Route: 055
     Dates: start: 20170218, end: 20170530
  4. ASVERIN (TIPEPIDINE HIBENZATE) [Concomitant]
     Active Substance: TIPEPIDINE HIBENZATE
     Route: 048
     Dates: start: 20170218, end: 20170530
  5. MONTELUKAST [Concomitant]
     Active Substance: MONTELUKAST SODIUM
     Route: 048
     Dates: start: 20170218, end: 20170530
  6. HOKUNALIN [Concomitant]
     Active Substance: TULOBUTEROL
     Route: 062
  7. CODEINE PHOSPHATE [Concomitant]
     Active Substance: CODEINE PHOSPHATE
     Route: 048
     Dates: start: 20170218, end: 20170530

REACTIONS (1)
  - Dry mouth [Recovered/Resolved]

NARRATIVE: CASE EVENT DATE: 20170302
